FAERS Safety Report 9398571 (Version 2)
Quarter: 2013Q3

REPORT INFORMATION
  Report Type: Report from Study
  Country: TH (occurrence: TH)
  Receive Date: 20130712
  Receipt Date: 20130813
  Transmission Date: 20140515
  Serious: Yes (Life-Threatening, Other)
  Sender: FDA-Public Use
  Company Number: TH-GILEAD-2013-0070931

PATIENT
  Age: 21 Year
  Sex: Male

DRUGS (5)
  1. EMTRICITABINE/TENOFOVIR DISOPROXIL FUMARATE [Suspect]
     Indication: PROPHYLAXIS AGAINST HIV INFECTION
     Dosage: 1 DF, Q1WK
     Route: 048
     Dates: start: 20130124, end: 20130223
  2. DICLOFENAC SODIUM [Concomitant]
     Indication: HEADACHE
     Dosage: 1 DF, TID
     Route: 048
     Dates: start: 201302, end: 20130220
  3. CINNARIZINE [Concomitant]
     Indication: HEADACHE
     Dosage: 25 MG, PRN
     Route: 048
     Dates: start: 201209, end: 20130219
  4. PARACETAMOL [Concomitant]
     Indication: HEADACHE
     Dosage: 500 MG, PRN
     Route: 048
     Dates: start: 201302, end: 20130220
  5. CENTRUM                            /02217401/ [Concomitant]
     Indication: VITAMIN SUPPLEMENTATION
     Dosage: UNK UNK, QD
     Route: 048
     Dates: start: 201301, end: 20130220

REACTIONS (1)
  - Hepatic enzyme increased [Recovered/Resolved]
